FAERS Safety Report 9633902 (Version 1)
Quarter: 2013Q4

REPORT INFORMATION
  Report Type: Spontaneous
  Country: US (occurrence: US)
  Receive Date: 20131021
  Receipt Date: 20131021
  Transmission Date: 20140711
  Serious: No
  Sender: FDA-Public Use
  Company Number: US-JNJFOC-20131007068

PATIENT
  Age: 50 Year
  Sex: Female
  Weight: 145.15 kg

DRUGS (8)
  1. FENTANYL TRANSDERMAL SYSTEM [Suspect]
     Indication: PAIN
     Route: 062
     Dates: start: 20130925
  2. FENTANYL TRANSDERMAL SYSTEM [Suspect]
     Indication: PAIN
     Route: 062
     Dates: start: 201306, end: 201307
  3. FENTANYL TRANSDERMAL SYSTEM [Suspect]
     Indication: PAIN
     Route: 062
     Dates: start: 201307, end: 20130925
  4. PERCOCET [Concomitant]
     Indication: PAIN
     Route: 048
     Dates: start: 2008
  5. ABILIFY [Concomitant]
     Indication: DEPRESSION
     Route: 048
     Dates: start: 2010
  6. BUPROPION [Concomitant]
     Indication: DEPRESSION
     Route: 048
     Dates: start: 2010
  7. PRISTIQ [Concomitant]
     Indication: DEPRESSION
     Route: 048
     Dates: start: 2010
  8. SYNTHROID [Concomitant]
     Indication: THYROID CANCER
     Route: 048
     Dates: start: 1978

REACTIONS (3)
  - Product quality issue [Unknown]
  - Drug dose omission [Not Recovered/Not Resolved]
  - Therapeutic response decreased [Unknown]
